FAERS Safety Report 22642578 (Version 1)
Quarter: 2023Q2

REPORT INFORMATION
  Report Type: Report from Study
  Country: US (occurrence: US)
  Receive Date: 20230627
  Receipt Date: 20230627
  Transmission Date: 20230722
  Serious: Yes (Other)
  Sender: FDA-Public Use
  Company Number: US-JAZZ PHARMACEUTICALS-2023-US-008716

PATIENT
  Sex: Female

DRUGS (17)
  1. SODIUM OXYBATE [Suspect]
     Active Substance: SODIUM OXYBATE
     Indication: Narcolepsy
     Dosage: 2.25 MILLIGRAM, BID (4.5 GM NIGHTLY)
  2. SODIUM OXYBATE [Suspect]
     Active Substance: SODIUM OXYBATE
     Indication: Cataplexy
  3. SODIUM OXYBATE [Suspect]
     Active Substance: SODIUM OXYBATE
     Indication: Somnolence
  4. ALBUTEROL SULFATE [Concomitant]
     Active Substance: ALBUTEROL SULFATE
     Dosage: ACTUATION INHALER 2 PUFFS EVERY 4 HOURS PRN
  5. SYMBICORT [Concomitant]
     Active Substance: BUDESONIDE\FORMOTEROL FUMARATE DIHYDRATE
     Dosage: 80-4.5MCG/ACTUTATION INHALER 2 PUFFS DAILY
  6. BUSPIRONE [Concomitant]
     Active Substance: BUSPIRONE HYDROCHLORIDE
     Dosage: UNK, BID
  7. VITAMIN D3 [Concomitant]
     Active Substance: CHOLECALCIFEROL
     Dosage: 400 UNIT DAILY
  8. CYANOCOBALAMIN [Concomitant]
     Active Substance: CYANOCOBALAMIN
     Dosage: DAILY
  9. AJOVY [Concomitant]
     Active Substance: FREMANEZUMAB-VFRM
     Dosage: 225MG/1.5ML AUTO INJECTOR ONCE EVERY 28 DAYS
  10. MAGNESIUM [Concomitant]
     Active Substance: MAGNESIUM
     Dosage: UNK UNK, BID
  11. METFORMIN [Concomitant]
     Active Substance: METFORMIN HYDROCHLORIDE
     Dosage: DAILY
  12. MIDODRINE [Concomitant]
     Active Substance: MIDODRINE
     Dosage: UNK, TID
  13. VITAMINS [Concomitant]
     Active Substance: VITAMINS
     Dosage: DAILY
  14. NADOLOL [Concomitant]
     Active Substance: NADOLOL
     Dosage: DAILY
  15. SERTRALINE [Concomitant]
     Active Substance: SERTRALINE HYDROCHLORIDE
     Dosage: UNK, TID
  16. SODIUM CHLORIDE [Concomitant]
     Active Substance: SODIUM CHLORIDE
     Dosage: UNK, BID
  17. UBRELVY [Concomitant]
     Active Substance: UBROGEPANT
     Dosage: DAILY

REACTIONS (5)
  - Arrhythmia [Unknown]
  - Polycystic ovaries [Unknown]
  - Asthma exercise induced [Unknown]
  - Drug effect less than expected [Unknown]
  - Incorrect product administration duration [Unknown]
